FAERS Safety Report 9426645 (Version 1)
Quarter: 2013Q3

REPORT INFORMATION
  Report Type: Spontaneous
  Country: US (occurrence: US)
  Receive Date: 20130730
  Receipt Date: 20130730
  Transmission Date: 20140515
  Serious: No
  Sender: FDA-Public Use
  Company Number: US-B.I. PHARMACEUTICALS,INC./RIDGEFIELD-2013-BI-22185BP

PATIENT
  Sex: Female

DRUGS (1)
  1. TRADJENTA [Suspect]
     Dates: end: 20130723

REACTIONS (1)
  - Swelling [Not Recovered/Not Resolved]
